FAERS Safety Report 10017504 (Version 2)
Quarter: 2014Q2

REPORT INFORMATION
  Report Type: Spontaneous
  Country: US (occurrence: US)
  Receive Date: 20140318
  Receipt Date: 20140407
  Transmission Date: 20141212
  Serious: No
  Sender: FDA-Public Use
  Company Number: US-BAYER-2014-040088

PATIENT
  Age: 87 Year
  Sex: Female

DRUGS (2)
  1. ALEVE CAPLET [Suspect]
     Indication: PAIN
     Dosage: 2 PILLS EVERY 24 HOURS
     Route: 048
  2. ALEVE CAPLET [Suspect]
     Indication: INJURY

REACTIONS (2)
  - Drug ineffective [None]
  - Off label use [None]
